FAERS Safety Report 5121981-7 (Version None)
Quarter: 2006Q4

REPORT INFORMATION
  Report Type: 
  Country: None (occurrence: None)
  Receive Date: 20061003
  Receipt Date: 20060921
  Transmission Date: 20070319
  Serious: Yes (Disabling, Other)
  Sender: FDA-Public Use
  Company Number: 2006114598

PATIENT
  Age: 48 Year
  Sex: Female
  Weight: 60.782 kg

DRUGS (3)
  1. CHANTIX [Suspect]
     Indication: SMOKING CESSATION THERAPY
     Dosage: 0.5 MG (0.5 MG, 1 IN 1 D) ORAL
     Route: 048
     Dates: start: 20060921, end: 20060921
  2. RISPERDAL [Concomitant]
  3. KLONOPIN [Concomitant]

REACTIONS (3)
  - MALAISE [None]
  - PARANOIA [None]
  - PERFORMANCE STATUS DECREASED [None]
